APPROVED DRUG PRODUCT: NEVIRAPINE
Active Ingredient: NEVIRAPINE
Strength: 400MG
Dosage Form/Route: TABLET, EXTENDED RELEASE;ORAL
Application: A205258 | Product #001
Applicant: APOTEX INC
Approved: Apr 3, 2014 | RLD: No | RS: No | Type: DISCN